FAERS Safety Report 9668590 (Version 1)
Quarter: 2013Q4

REPORT INFORMATION
  Report Type: Spontaneous
  Country: AU (occurrence: AU)
  Receive Date: 20131105
  Receipt Date: 20131105
  Transmission Date: 20140711
  Serious: Yes (Death, Other)
  Sender: FDA-Public Use
  Company Number: AU-ROCHE-1298843

PATIENT
  Age: 84 Year
  Sex: 0

DRUGS (1)
  1. XELODA [Suspect]
     Indication: COLORECTAL CANCER
     Route: 065

REACTIONS (2)
  - Death [Fatal]
  - Metastases to liver [Unknown]
